FAERS Safety Report 7731432-1 (Version None)
Quarter: 2011Q3

REPORT INFORMATION
  Report Type: 
  Country: None (occurrence: None)
  Receive Date: 20110906
  Receipt Date: 20110426
  Transmission Date: 20111222
  Serious: No
  Sender: FDA-Public Use
  Company Number: US-BAYER-2011-035997

PATIENT
  Age: 67 Year
  Sex: Female

DRUGS (7)
  1. CIPROFLOXACIN [Suspect]
     Dosage: 500 MG, TABLET
  2. PENTASA [Concomitant]
  3. AMBIEN [Concomitant]
  4. DICYCLOMINE [Concomitant]
  5. ALBUTEROL SULFATE AUTOHALER [Concomitant]
  6. BONIVA [Concomitant]
  7. ATIVAN [Concomitant]

REACTIONS (1)
  - NAIL BED DISORDER [None]
